FAERS Safety Report 8537980-9 (Version None)
Quarter: 2012Q3

REPORT INFORMATION
  Report Type: 
  Country: None (occurrence: None)
  Receive Date: 20120725
  Receipt Date: 20120712
  Transmission Date: 20120928
  Serious: No
  Sender: FDA-Public Use
  Company Number: US-ASTRAZENECA-2012SE48742

PATIENT
  Age: 55 Year
  Sex: Male
  Weight: 117.9 kg

DRUGS (2)
  1. SEROQUEL [Suspect]
     Indication: BIPOLAR DISORDER
     Route: 048
  2. SEROQUEL [Suspect]
     Dosage: GENERIC
     Route: 048
     Dates: start: 20120625

REACTIONS (11)
  - FOREIGN BODY [None]
  - HEADACHE [None]
  - NERVOUSNESS [None]
  - DRUG DOSE OMISSION [None]
  - MALAISE [None]
  - CHOKING [None]
  - CIRCUMSTANCE OR INFORMATION CAPABLE OF LEADING TO MEDICATION ERROR [None]
  - DYSPHONIA [None]
  - INTENTIONAL DRUG MISUSE [None]
  - DYSPHAGIA [None]
  - OROPHARYNGEAL PAIN [None]
